FAERS Safety Report 9042275 (Version 1)
Quarter: 2013Q1

REPORT INFORMATION
  Report Type: Report from Study
  Country: US (occurrence: US)
  Receive Date: 20130129
  Receipt Date: 20130129
  Transmission Date: 20140127
  Serious: No
  Sender: FDA-Public Use
  Company Number: US-ABBOTT-12P-163-0909105-00

PATIENT
  Age: 67 Year
  Sex: Female

DRUGS (4)
  1. HUMIRA 40 MG/ 0.8 ML PRE-FILLED SYRINGE [Suspect]
     Indication: CROHN^S DISEASE
     Dates: start: 201102
  2. MESALAMINE [Concomitant]
     Indication: COLITIS ULCERATIVE
  3. MESALAMINE SUPPOSITORY [Concomitant]
     Indication: COLITIS ULCERATIVE
     Dosage: AT NIGHT
  4. SIMVASTATIN [Concomitant]
     Indication: BLOOD CHOLESTEROL INCREASED
     Dosage: 0.5 IN 1 D

REACTIONS (1)
  - Dizziness [Not Recovered/Not Resolved]
